FAERS Safety Report 7827462-1 (Version None)
Quarter: 2011Q4

REPORT INFORMATION
  Report Type: 
  Country: None (occurrence: None)
  Receive Date: 20111020
  Receipt Date: 20111007
  Transmission Date: 20120403
  Serious: Yes (Other)
  Sender: FDA-Public Use
  Company Number: ES-PERRIGO-11ES008570

PATIENT
  Age: 39 Year
  Sex: Female

DRUGS (2)
  1. CETIRIZINE HCL [Suspect]
     Indication: INFLAMMATION
     Dosage: 10 MG, QD
     Route: 048
  2. CETIRIZINE HCL [Suspect]
     Indication: CONJUNCTIVITIS

REACTIONS (10)
  - CHROMATURIA [None]
  - HEPATITIS TOXIC [None]
  - JAUNDICE [None]
  - PRURITUS [None]
  - ASPARTATE AMINOTRANSFERASE INCREASED [None]
  - ALANINE AMINOTRANSFERASE INCREASED [None]
  - BLOOD ALKALINE PHOSPHATASE INCREASED [None]
  - URTICARIA [None]
  - ARTHRALGIA [None]
  - HYPERCHOLIA [None]
